FAERS Safety Report 5503490-6 (Version None)
Quarter: 2007Q4

REPORT INFORMATION
  Report Type: 
  Country: None (occurrence: None)
  Receive Date: 20071029
  Receipt Date: 20071017
  Transmission Date: 20080405
  Serious: Yes (Other)
  Sender: FDA-Public Use
  Company Number: CHNY2007GB00445

PATIENT
  Age: 8 Year
  Sex: Male

DRUGS (1)
  1. TIXYLIX CHESTY COUGH (NCH)(GUAIFENESIN) UNKNOWN [Suspect]
     Indication: NASOPHARYNGITIS
     Dosage: 10 ML, BID, ORAL
     Route: 048
     Dates: start: 20061223, end: 20061223

REACTIONS (7)
  - DISCOMFORT [None]
  - LIP SWELLING [None]
  - OEDEMA PERIPHERAL [None]
  - PRURITUS [None]
  - RASH MACULAR [None]
  - SKIN DISORDER [None]
  - SWELLING FACE [None]
